FAERS Safety Report 12922501 (Version 6)
Quarter: 2017Q1

REPORT INFORMATION
  Report Type: Spontaneous
  Country: IT (occurrence: IT)
  Receive Date: 20161109
  Receipt Date: 20170127
  Transmission Date: 20170428
  Serious: Yes (Other)
  Sender: FDA-Public Use
  Company Number: IT-JNJFOC-20161101577

PATIENT
  Age: 25 Year
  Sex: Female

DRUGS (9)
  1. PLASIL [Suspect]
     Active Substance: METOCLOPRAMIDE HYDROCHLORIDE
     Indication: DRUG ABUSE
     Dosage: 24 TABLETS
     Route: 048
     Dates: start: 20161029, end: 20161029
  2. LEVOTHYROXINE TEVA [Suspect]
     Active Substance: LEVOTHYROXINE
     Indication: DRUG ABUSE
     Dosage: 15 TABLETS
     Route: 048
     Dates: start: 20161029, end: 20161029
  3. AZITHROMYCIN ANHYDROUS. [Suspect]
     Active Substance: AZITHROMYCIN ANHYDROUS
     Indication: PRODUCT USED FOR UNKNOWN INDICATION
     Dosage: UNSPECIFIED NUMBER OF TABLET
     Route: 048
     Dates: start: 20161029, end: 20161029
  4. LEVOFLOXACIN. [Suspect]
     Active Substance: LEVOFLOXACIN
     Indication: PRODUCT USED FOR UNKNOWN INDICATION
     Route: 048
     Dates: start: 20161029, end: 20161029
  5. DEXMINE [Suspect]
     Active Substance: DEXCHLORPHENIRAMINE MALEATE
     Indication: PRODUCT USED FOR UNKNOWN INDICATION
     Route: 048
     Dates: start: 20161029, end: 20161029
  6. KLAIRA [Suspect]
     Active Substance: DIENOGEST\ETHINYL ESTRADIOL
     Indication: PRODUCT USED FOR UNKNOWN INDICATION
     Route: 048
     Dates: start: 20161029, end: 20161029
  7. IBUPROFEN. [Suspect]
     Active Substance: IBUPROFEN
     Route: 048
  8. IBUPROFEN. [Suspect]
     Active Substance: IBUPROFEN
     Indication: DRUG ABUSE
     Dosage: 6 TABLETS
     Route: 048
     Dates: start: 20161029, end: 20161029
  9. MYLICON INFANTS GAS RELIEF ORIGINAL [Suspect]
     Active Substance: DIMETHICONE
     Indication: DRUG ABUSE
     Dosage: 25 TABLETS
     Route: 048
     Dates: start: 20161029, end: 20161029

REACTIONS (5)
  - Intentional overdose [Recovering/Resolving]
  - Sluggishness [Recovering/Resolving]
  - Intentional self-injury [Recovering/Resolving]
  - Psychomotor skills impaired [Recovering/Resolving]
  - Drug abuse [Recovering/Resolving]

NARRATIVE: CASE EVENT DATE: 20161029
